FAERS Safety Report 4644257-0 (Version None)
Quarter: 2005Q2

REPORT INFORMATION
  Report Type: 
  Country: None (occurrence: None)
  Receive Date: 20050422
  Receipt Date: 20050408
  Transmission Date: 20051028
  Serious: No
  Sender: FDA-Public Use
  Company Number: FABR-10160

PATIENT
  Age: 34 Year
  Sex: Male
  Weight: 72 kg

DRUGS (18)
  1. FABRAZYME [Suspect]
     Indication: FABRY'S DISEASE
     Dosage: 1 MG/KG Q2WKS IV
     Route: 042
  2. FABRAZYME [Suspect]
     Indication: FABRY'S DISEASE
     Dosage: 0.9 MG/KG Q2WKS IV
     Route: 042
     Dates: start: 20030306, end: 20030306
  3. FABRAZYME [Suspect]
     Indication: FABRY'S DISEASE
     Dosage: 0.5 MG/KG Q2WKS IV
     Route: 042
     Dates: start: 20030213, end: 20030220
  4. FABRAZYME [Suspect]
     Indication: FABRY'S DISEASE
     Dosage: 0.9 MG/KG Q2WKS IV
     Route: 042
     Dates: start: 20030121, end: 20030121
  5. FABRAZYME [Suspect]
     Indication: FABRY'S DISEASE
     Dosage: 1 MG/KG Q2WKS IV
     Route: 042
     Dates: start: 20021024, end: 20030106
  6. FABRAZYME [Suspect]
     Indication: FABRY'S DISEASE
     Dosage: 0.5 MG/KG QWK IV
     Route: 042
     Dates: start: 20021001, end: 20021008
  7. PARACETAMOL WITH CODEINE [Concomitant]
  8. VENTOLIN HFA [Concomitant]
  9. TRIATEC [Concomitant]
  10. ARESTAL [Concomitant]
  11. EDTA CHROME 51 [Concomitant]
  12. GADOLINIUM [Concomitant]
  13. AUGMENTIN '125' [Concomitant]
  14. TAVANIC [Concomitant]
  15. SURBRONC [Concomitant]
  16. SOLUPRED [Concomitant]
  17. OZOTHINE A LA DIPROPHYLLINE [Concomitant]
  18. SYMBICORT TURBUHALER [Concomitant]

REACTIONS (9)
  - ABDOMINAL PAIN [None]
  - CHILLS [None]
  - COMPLEMENT FACTOR ABNORMAL [None]
  - ERYTHEMA [None]
  - FLUSHING [None]
  - SKIN TEST POSITIVE [None]
  - THROAT TIGHTNESS [None]
  - URTICARIA [None]
  - VOMITING [None]
